FAERS Safety Report 7717877-4 (Version None)
Quarter: 2011Q3

REPORT INFORMATION
  Report Type: 
  Country: None (occurrence: None)
  Receive Date: 20110830
  Receipt Date: 20110822
  Transmission Date: 20111222
  Serious: Yes (Hospitalization)
  Sender: FDA-Public Use
  Company Number: NL-CELGENEUS-114-21880-11082417

PATIENT
  Sex: Female
  Weight: 54 kg

DRUGS (6)
  1. NEXIUM [Concomitant]
     Dosage: 2 MILLIGRAM
     Route: 065
     Dates: start: 20090101
  2. SIMAVASTATIN [Concomitant]
     Route: 048
     Dates: start: 20090101
  3. PERINDOPRIL [Concomitant]
     Route: 048
     Dates: start: 20090101
  4. METOPROLOL TARTRATE [Concomitant]
     Dosage: 5 MILLIGRAM
     Route: 065
     Dates: start: 20090101
  5. STIPROX [Concomitant]
     Route: 065
     Dates: start: 20090101
  6. REVLIMID [Suspect]
     Dosage: 10 MILLIGRAM
     Route: 048
     Dates: start: 20080101

REACTIONS (1)
  - BREAST CANCER [None]
